FAERS Safety Report 5084874-X (Version None)
Quarter: 2006Q3

REPORT INFORMATION
  Report Type: 
  Country: None (occurrence: None)
  Receive Date: 20060815
  Receipt Date: 20060803
  Transmission Date: 20061208
  Serious: Yes (Hospitalization)
  Sender: FDA-Public Use
  Company Number: 2006VX000947

PATIENT
  Age: 47 Year
  Sex: Male
  Weight: 80.7 kg

DRUGS (4)
  1. INTERFERON ALFACON-1 (INTERFERON ALFACON-1) (9 UG) [Suspect]
     Indication: HEPATITIS C
     Dosage: SEE IMAGE
     Route: 058
     Dates: start: 20060313, end: 20060426
  2. INTERFERON ALFACON-1 (INTERFERON ALFACON-1) (9 UG) [Suspect]
     Indication: HEPATITIS C
     Dosage: SEE IMAGE
     Route: 058
     Dates: start: 20060426, end: 20060606
  3. ACTRAPID INSULIN NOVO [Concomitant]
  4. PROTAPHANE MC [Concomitant]

REACTIONS (7)
  - BLOOD GLUCOSE FLUCTUATION [None]
  - CONFUSIONAL STATE [None]
  - DEHYDRATION [None]
  - DISORIENTATION [None]
  - DISTURBANCE IN ATTENTION [None]
  - LEUKOPENIA [None]
  - THROMBOCYTOPENIA [None]
